FAERS Safety Report 8599504-X (Version None)
Quarter: 2012Q3

REPORT INFORMATION
  Report Type: 
  Country: None (occurrence: None)
  Receive Date: 20120816
  Receipt Date: 20120727
  Transmission Date: 20120928
  Serious: No
  Sender: FDA-Public Use
  Company Number: US-ALLERGAN-1207069US

PATIENT
  Age: 24 Year
  Sex: Male

DRUGS (3)
  1. LASTACAFT [Suspect]
     Indication: CONJUNCTIVITIS ALLERGIC
     Dosage: 20 MINUTES PRIOR TO INSERTING CONTACTS
     Route: 047
     Dates: start: 20120501
  2. CLARITIN [Concomitant]
     Indication: SEASONAL ALLERGY
     Dosage: DAILY SPRING AND SUMMER
     Route: 048
  3. PATANOL [Concomitant]
     Indication: CONJUNCTIVITIS ALLERGIC
     Dosage: 2 GTT, BID
     Route: 047

REACTIONS (1)
  - OCULAR HYPERAEMIA [None]
